FAERS Safety Report 17130982 (Version 1)
Quarter: 2019Q4

REPORT INFORMATION
  Report Type: Spontaneous
  Country: US (occurrence: US)
  Receive Date: 20191209
  Receipt Date: 20191209
  Transmission Date: 20200122
  Serious: Yes (Other)
  Sender: FDA-Public Use
  Company Number: US-ROCHE-2373829

PATIENT
  Age: 37 Year
  Sex: Female

DRUGS (2)
  1. VALIUM [Suspect]
     Active Substance: DIAZEPAM
     Indication: HYPERVENTILATION
     Dosage: 60 TO 80 MG
     Route: 065
  2. VALIUM [Suspect]
     Active Substance: DIAZEPAM
     Route: 065

REACTIONS (2)
  - Drug abuse [Unknown]
  - Drug withdrawal syndrome [Unknown]
